FAERS Safety Report 13952603 (Version 1)
Quarter: 2017Q3

REPORT INFORMATION
  Report Type: Spontaneous
  Country: US (occurrence: US)
  Receive Date: 20170911
  Receipt Date: 20170911
  Transmission Date: 20171128
  Serious: No
  Sender: FDA-Public Use
  Company Number: US-009507513-1708USA009002

PATIENT
  Age: 22 Year
  Sex: Female
  Weight: 53.06 kg

DRUGS (3)
  1. NEXPLANON [Suspect]
     Active Substance: ETONOGESTREL
     Indication: CONTRACEPTION
     Dosage: 1 ROD UP TO 3 YEARS, IMPLANT RIGHT ARM
     Route: 059
     Dates: start: 201412
  2. HYDROXYZINE [Concomitant]
     Active Substance: HYDROXYZINE HYDROCHLORIDE
     Dosage: 50 MG 2X
  3. SERTRALINE HYDROCHLORIDE. [Concomitant]
     Active Substance: SERTRALINE HYDROCHLORIDE
     Dosage: 25 MG 1X

REACTIONS (6)
  - Metrorrhagia [Unknown]
  - Mood swings [Recovered/Resolved]
  - Nausea [Unknown]
  - Metrorrhagia [Recovered/Resolved]
  - Muscle spasms [Unknown]
  - Rash generalised [Unknown]

NARRATIVE: CASE EVENT DATE: 201412
